FAERS Safety Report 5030452-8 (Version None)
Quarter: 2006Q2

REPORT INFORMATION
  Report Type: 
  Country: None (occurrence: None)
  Receive Date: 20060615
  Receipt Date: 20060530
  Transmission Date: 20061013
  Serious: Yes (Disabling, Other)
  Sender: FDA-Public Use
  Company Number: US200606000248

PATIENT
  Age: 31 Year
  Sex: Female

DRUGS (2)
  1. GEMZAR [Suspect]
     Indication: CERVIX CARCINOMA STAGE I
     Dosage: 100 MG/M2, WEEKLY (1/W), INTRAVENOUS
     Route: 042
  2. CISPLATIN [Concomitant]

REACTIONS (12)
  - ANAEMIA [None]
  - CYSTITIS HAEMORRHAGIC [None]
  - DEAFNESS NEUROSENSORY [None]
  - DRUG INTERACTION [None]
  - HYPOALBUMINAEMIA [None]
  - HYSTERECTOMY [None]
  - LUNG DISORDER [None]
  - NAUSEA [None]
  - NEUTROPHIL COUNT DECREASED [None]
  - OTOTOXICITY [None]
  - PLATELET COUNT DECREASED [None]
  - TINNITUS [None]
